FAERS Safety Report 23325966 (Version 1)
Quarter: 2023Q4

REPORT INFORMATION
  Report Type: Other
  Country: CA (occurrence: CA)
  Receive Date: 20231221
  Receipt Date: 20231221
  Transmission Date: 20240110
  Serious: Yes (Other)
  Sender: FDA-Public Use
  Company Number: CA-APOTEX-2023AP018071

PATIENT
  Age: 20 Year
  Sex: Female

DRUGS (4)
  1. CETIRIZINE [Suspect]
     Active Substance: CETIRIZINE HYDROCHLORIDE
     Indication: Multiple allergies
     Dosage: UNK
     Route: 065
  2. CETIRIZINE [Suspect]
     Active Substance: CETIRIZINE HYDROCHLORIDE
     Indication: Arthropod sting
  3. REMICADE [Suspect]
     Active Substance: INFLIXIMAB
     Indication: Crohn^s disease
     Dosage: 400 MILLIGRAM, ONCE IN 4 WEEK
     Route: 041
  4. REMICADE [Suspect]
     Active Substance: INFLIXIMAB
     Dosage: UNK
     Route: 042

REACTIONS (6)
  - Hypersomnia [Recovered/Resolved]
  - Arthropod sting [Recovered/Resolved]
  - Cellulitis [Recovered/Resolved]
  - Multiple allergies [Recovered/Resolved]
  - Off label use [Recovered/Resolved]
  - Peripheral swelling [Recovered/Resolved]
